FAERS Safety Report 6523187-3 (Version None)
Quarter: 2009Q4

REPORT INFORMATION
  Report Type: 
  Country: None (occurrence: None)
  Receive Date: 20091230
  Receipt Date: 20091220
  Transmission Date: 20100525
  Serious: Yes (Hospitalization)
  Sender: FDA-Public Use
  Company Number: IT-RANBAXY-2009RR-29940

PATIENT
  Sex: Male

DRUGS (1)
  1. LORAZEPAM [Suspect]

REACTIONS (4)
  - ANXIETY [None]
  - CONFUSIONAL STATE [None]
  - SLEEP DISORDER [None]
  - SOMNOLENCE [None]
